FAERS Safety Report 24288723 (Version 2)
Quarter: 2024Q3

REPORT INFORMATION
  Report Type: Spontaneous
  Country: US (occurrence: US)
  Receive Date: 20240906
  Receipt Date: 20240928
  Transmission Date: 20241016
  Serious: Yes (Other)
  Sender: AUROBINDO
  Company Number: US-MLMSERVICE-20240819-PI166584-00071-1

PATIENT
  Age: 8 Year
  Sex: Male
  Weight: 27.5 kg

DRUGS (13)
  1. BUDESONIDE [Suspect]
     Active Substance: BUDESONIDE
     Indication: Reactive gastropathy
     Dosage: 9 MILLIGRAM, ONCE A DAY (3MG THREE TIMES A DAY)
     Route: 048
  2. BUDESONIDE [Suspect]
     Active Substance: BUDESONIDE
     Indication: Iron deficiency anaemia
  3. BUDESONIDE [Suspect]
     Active Substance: BUDESONIDE
     Indication: Hypoalbuminaemia
  4. BENRALIZUMAB [Concomitant]
     Active Substance: BENRALIZUMAB
     Indication: Eosinophilic oesophagitis
     Dosage: 30 MILLIGRAM, EVERY FOUR WEEKS
     Route: 058
  5. BENRALIZUMAB [Concomitant]
     Active Substance: BENRALIZUMAB
     Indication: Hypereosinophilic syndrome
  6. BENRALIZUMAB [Concomitant]
     Active Substance: BENRALIZUMAB
     Indication: Iron deficiency anaemia
  7. BENRALIZUMAB [Concomitant]
     Active Substance: BENRALIZUMAB
     Indication: Hypoalbuminaemia
  8. BENRALIZUMAB [Concomitant]
     Active Substance: BENRALIZUMAB
     Indication: Eosinophilic gastritis
  9. OMEPRAZOLE [Concomitant]
     Active Substance: OMEPRAZOLE
     Indication: Hypereosinophilic syndrome
     Dosage: 20 MILLIGRAM, ONCE A DAY
     Route: 065
  10. OMEPRAZOLE [Concomitant]
     Active Substance: OMEPRAZOLE
     Indication: Eosinophilic oesophagitis
     Dosage: UNK
     Route: 065
  11. OMEPRAZOLE [Concomitant]
     Active Substance: OMEPRAZOLE
     Indication: Hypoalbuminaemia
  12. OMEPRAZOLE [Concomitant]
     Active Substance: OMEPRAZOLE
     Indication: Eosinophilic gastritis
  13. OMEPRAZOLE [Concomitant]
     Active Substance: OMEPRAZOLE
     Indication: Iron deficiency anaemia

REACTIONS (2)
  - Adrenal insufficiency [Recovering/Resolving]
  - Wrong technique in product usage process [Unknown]
